FAERS Safety Report 6932784-2 (Version None)
Quarter: 2010Q3

REPORT INFORMATION
  Report Type: 
  Country: None (occurrence: None)
  Receive Date: 20100819
  Receipt Date: 20100812
  Transmission Date: 20110219
  Serious: Yes (Other)
  Sender: FDA-Public Use
  Company Number: US-ABBOTT-10P-163-0663957-00

PATIENT
  Sex: Female
  Weight: 113.5 kg

DRUGS (5)
  1. HUMIRA [Suspect]
     Indication: PSORIASIS
     Dosage: ONCE
     Dates: start: 20100701, end: 20100701
  2. VERAPAMIL [Concomitant]
     Indication: HYPERTENSION
  3. LISINOPRIL [Concomitant]
     Indication: HYPERTENSION
  4. LEXAPRO [Concomitant]
     Indication: DEPRESSION
     Dates: start: 20040101
  5. LEVOTHROID [Concomitant]
     Indication: HYPOTHYROIDISM

REACTIONS (17)
  - BLISTER [None]
  - ERYTHEMA [None]
  - EYE SWELLING [None]
  - FATIGUE [None]
  - LIP DISCOLOURATION [None]
  - LIP SWELLING [None]
  - MOUTH ULCERATION [None]
  - OCULAR HYPERAEMIA [None]
  - OEDEMA PERIPHERAL [None]
  - OROPHARYNGEAL BLISTERING [None]
  - OROPHARYNGEAL PAIN [None]
  - PYREXIA [None]
  - SKIN BURNING SENSATION [None]
  - SKIN EXFOLIATION [None]
  - SKIN ULCER [None]
  - STEVENS-JOHNSON SYNDROME [None]
  - SWELLING FACE [None]
